FAERS Safety Report 13509840 (Version 1)
Quarter: 2017Q2

REPORT INFORMATION
  Report Type: Spontaneous
  Country: US (occurrence: US)
  Receive Date: 20170503
  Receipt Date: 20170503
  Transmission Date: 20170830
  Serious: No
  Sender: FDA-Public Use
  Company Number: US-SA-2017SA047334

PATIENT
  Sex: Male

DRUGS (19)
  1. FAMOTIDINE. [Concomitant]
     Active Substance: FAMOTIDINE
     Dosage: 20MG
  2. FLEXPEN [Concomitant]
     Active Substance: UNSPECIFIED INGREDIENT
  3. INVOKANA [Concomitant]
     Active Substance: CANAGLIFLOZIN
     Dosage: 300 MG
  4. METFORMIN [Concomitant]
     Active Substance: METFORMIN HYDROCHLORIDE
     Dosage: 1000 MG
  5. TRIAMCINOLONE [Concomitant]
     Active Substance: TRIAMCINOLONE
     Dosage: 0.1%
  6. ECONAZOLE [Concomitant]
     Active Substance: ECONAZOLE
     Dosage: 1%
  7. LIDOCAINE. [Concomitant]
     Active Substance: LIDOCAINE
     Dosage: PAD 5%
  8. LOSARTAN POTASSIUM. [Concomitant]
     Active Substance: LOSARTAN POTASSIUM
     Dosage: 25 MG
  9. ZOLPIDEM [Concomitant]
     Active Substance: ZOLPIDEM\ZOLPIDEM TARTRATE
     Dosage: 10 MG
  10. SOLOSTAR [Concomitant]
     Active Substance: DEVICE
  11. NOVOLOG [Concomitant]
     Active Substance: INSULIN ASPART
  12. PRALUENT [Suspect]
     Active Substance: ALIROCUMAB
     Route: 058
     Dates: start: 20170104
  13. ALIROCUMAB PREFILLED PEN [Concomitant]
     Active Substance: ALIROCUMAB
     Dates: start: 20170104
  14. FENOFIBRATE. [Concomitant]
     Active Substance: FENOFIBRATE
     Dosage: 160 MG
  15. PRAMIPEXOLE. [Concomitant]
     Active Substance: PRAMIPEXOLE
     Dosage: 0.5 MG
  16. LANTUS SOLOSTAR [Concomitant]
     Active Substance: INSULIN GLARGINE
  17. MELOXICAM. [Concomitant]
     Active Substance: MELOXICAM
     Dosage: 15 MG
  18. NYSTATIN/TRIAMCINOLONE ACETONIDE [Concomitant]
  19. FUROSEMIDE. [Concomitant]
     Active Substance: FUROSEMIDE
     Dosage: 20 MG

REACTIONS (2)
  - Arthralgia [Unknown]
  - Insomnia [Unknown]
